FAERS Safety Report 9510184 (Version 2)
Quarter: 2013Q3

REPORT INFORMATION
  Report Type: Spontaneous
  Country: US (occurrence: US)
  Receive Date: 20130909
  Receipt Date: 20130909
  Transmission Date: 20140515
  Serious: No
  Sender: FDA-Public Use
  Company Number: US-BRISTOL-MYERS SQUIBB COMPANY-18715631

PATIENT
  Age: 46 Year
  Sex: Male

DRUGS (3)
  1. ABILIFY [Suspect]
     Indication: DEPRESSION
  2. ATIVAN [Concomitant]
  3. LEXAPRO [Concomitant]

REACTIONS (4)
  - Hypersomnia [Unknown]
  - Blood pressure increased [Unknown]
  - Weight increased [Unknown]
  - Product colour issue [Unknown]
